FAERS Safety Report 11065848 (Version 1)
Quarter: 2015Q2

REPORT INFORMATION
  Report Type: Report from Study
  Country: US (occurrence: None)
  Receive Date: 20150423
  Receipt Date: 20150423
  Transmission Date: 20150821
  Serious: No
  Sender: FDA-Public Use
  Company Number: US-001862N

PATIENT
  Age: 69 Year
  Sex: Female

DRUGS (2)
  1. SOLUTION S FOR PARENTERAL NUTRITION [Concomitant]
  2. GATTEX [Suspect]
     Active Substance: TEDUGLUTIDE\WATER
     Indication: SHORT-BOWEL SYNDROME
     Dosage: DF
     Route: 058
     Dates: start: 20140930

REACTIONS (13)
  - Asthenia [None]
  - Cough [None]
  - Blood electrolytes increased [None]
  - Dehydration [None]
  - Ventricular fibrillation [None]
  - Blood creatinine increased [None]
  - Blood potassium decreased [None]
  - Drug dose omission [None]
  - Nasopharyngitis [None]
  - Fall [None]
  - Blood urea increased [None]
  - Hallucination [None]
  - Blood glucose increased [None]

NARRATIVE: CASE EVENT DATE: 201503
